FAERS Safety Report 21993903 (Version 1)
Quarter: 2023Q1

REPORT INFORMATION
  Report Type: Spontaneous
  Country: PR (occurrence: PR)
  Receive Date: 20230215
  Receipt Date: 20230215
  Transmission Date: 20230417
  Serious: No
  Sender: FDA-Public Use
  Company Number: PR-JNJFOC-20230206190

PATIENT
  Age: 47 Year
  Sex: Female
  Weight: 66.738 kg

DRUGS (5)
  1. ZYRTEC [Suspect]
     Active Substance: CETIRIZINE HYDROCHLORIDE
     Indication: Product used for unknown indication
     Route: 048
  2. ZAVESCA [Concomitant]
     Active Substance: MIGLUSTAT
     Indication: Product used for unknown indication
     Route: 048
  3. GLYCOPYRROLATE [Concomitant]
     Active Substance: GLYCOPYRROLATE
     Indication: Product used for unknown indication
     Route: 048
  4. FLUOXETINE [Concomitant]
     Active Substance: FLUOXETINE HYDROCHLORIDE
     Indication: Product used for unknown indication
     Route: 048
  5. NEURIN [CYANOCOBALAMIN] [Concomitant]
     Indication: Hereditary ataxia
     Dosage: 600 - 600 MCG TABLET
     Route: 060

REACTIONS (3)
  - Asthenia [Unknown]
  - Speech disorder [Unknown]
  - Fatigue [Unknown]
